FAERS Safety Report 9162256 (Version 1)
Quarter: 2013Q1

REPORT INFORMATION
  Report Type: Spontaneous
  Country: GB (occurrence: None)
  Receive Date: 20130215
  Receipt Date: 20130215
  Transmission Date: 20140127
  Serious: Yes (Hospitalization)
  Sender: FDA-Public Use
  Company Number: SYM-2013-00478

PATIENT
  Age: 72 Year
  Sex: 0

DRUGS (8)
  1. 5-FU [Suspect]
     Indication: COLORECTAL CANCER METASTATIC
     Route: 040
     Dates: start: 20120925, end: 20120925
  2. AFLIBERCEPT [Suspect]
     Indication: COLORECTAL CANCER METASTATIC
     Route: 041
     Dates: start: 20120925, end: 20120925
  3. LEUCOVORIN [Suspect]
     Indication: COLORECTAL CANCER METASTATIC
     Route: 041
     Dates: start: 20120925, end: 20120925
  4. IRINOTECAN [Suspect]
     Indication: COLORECTAL CANCER METASTATIC
     Route: 041
     Dates: start: 20120925, end: 20120925
  5. CALCIUM CHANNEL BLOCKERS (CALCIUM CHANNEL BLOCKERS) [Concomitant]
  6. ANTIFUNGALS (TOLNAFTATE) (TOLNAFTATE) [Concomitant]
  7. ANGIOTENSIN II ANTAGONOSTS (ANGIOTENSIN II ANTAGONISTS, PLAIN) [Concomitant]
  8. LOPERAMIDE (LOPERAMIDE) (LOPERAMIDE) [Concomitant]

REACTIONS (7)
  - Pneumonia [None]
  - Neutropenia [None]
  - Deep vein thrombosis [None]
  - Diarrhoea [None]
  - Lung infection [None]
  - Faeces discoloured [None]
  - Blood creatinine increased [None]
